FAERS Safety Report 24291987 (Version 8)
Quarter: 2025Q1

REPORT INFORMATION
  Report Type: Spontaneous
  Country: GR (occurrence: GR)
  Receive Date: 20240906
  Receipt Date: 20250103
  Transmission Date: 20250409
  Serious: No
  Sender: PFIZER
  Company Number: GR-PFIZER INC-PV202400115946

PATIENT
  Age: 10 Year
  Sex: Female
  Weight: 25 kg

DRUGS (2)
  1. GENOTROPIN [Suspect]
     Active Substance: SOMATROPIN
     Indication: Growth hormone deficiency
     Dosage: 5 MG, WEEKLY / 7 DAYS / 12 MG PEN
     Route: 058
     Dates: start: 202311
  2. ARVECAP [Concomitant]
     Indication: Puberty

REACTIONS (4)
  - Device use error [Unknown]
  - Liquid product physical issue [Unknown]
  - Device leakage [Unknown]
  - Device issue [Unknown]
